FAERS Safety Report 9407271 (Version 1)
Quarter: 2013Q3

REPORT INFORMATION
  Report Type: Spontaneous
  Country: US (occurrence: None)
  Receive Date: 20130709
  Receipt Date: 20130709
  Transmission Date: 20140515
  Serious: Yes (Death, Hospitalization)
  Sender: FDA-Public Use
  Company Number: 08-AUR-05099

PATIENT
  Age: 73 Year
  Sex: Female

DRUGS (5)
  1. CEFUROXIME [Suspect]
     Indication: URINARY TRACT INFECTION
  2. FUROSEMIDE (FUROSEMIDE) [Suspect]
     Indication: PRODUCT USED FOR UNKNOWN INDICATION
  3. ASPIRIN (ACETYLSALICYLIC ACID) [Concomitant]
  4. LISINOPRIL (LISINOPRIL) [Concomitant]
  5. CALCIUM CARBONATE [Concomitant]

REACTIONS (9)
  - Toxic epidermal necrolysis [None]
  - Granulocytopenia [None]
  - Gastrointestinal haemorrhage [None]
  - Sepsis [None]
  - Multi-organ failure [None]
  - Drug interaction [None]
  - Arthralgia [None]
  - Blood creatinine increased [None]
  - Haemoglobin decreased [None]
